FAERS Safety Report 9252548 (Version 1)
Quarter: 2013Q1

REPORT INFORMATION
  Report Type: Spontaneous
  Country: US (occurrence: None)
  Receive Date: 20130305
  Receipt Date: 20130305
  Transmission Date: 20140127
  Serious: Yes (Other)
  Sender: FDA-Public Use
  Company Number: 163-21880-12052348

PATIENT
  Age: 43 Year
  Sex: Male

DRUGS (5)
  1. REVLIMID (LENALIDOMIDE) (CAPSULES) [Suspect]
     Indication: PLASMA CELL MYELOMA
     Route: 048
     Dates: start: 201101
  2. REVLIMID (LENALIDOMIDE) [Suspect]
     Route: 048
     Dates: start: 20120420
  3. ACYCLOVIR (ACICLOVIR) [Concomitant]
  4. ASPIRIN(ACETYLSALICYLIC ACID)(UKNOWN) [Concomitant]
  5. PENTAMIDINE(PENTAMIDINE) [Concomitant]

REACTIONS (1)
  - Neutrophil count decreased [None]
